FAERS Safety Report 4610242-8 (Version None)
Quarter: 2005Q1

REPORT INFORMATION
  Report Type: 
  Country: None (occurrence: None)
  Receive Date: 20050314
  Receipt Date: 20040712
  Transmission Date: 20050727
  Serious: No
  Sender: FDA-Public Use
  Company Number: 8480

PATIENT
  Sex: Female

DRUGS (3)
  1. AMIODARONE HCL [Suspect]
     Indication: ARRHYTHMIA
     Dosage: 400 MG/200 MG/100 MG, PO
     Route: 048
     Dates: start: 19970101
  2. AMIODARONE HCL [Suspect]
     Indication: ARRHYTHMIA
     Dosage: 400 MG/200 MG/100 MG, PO
     Route: 048
  3. AMIODARONE HCL [Suspect]
     Indication: ARRHYTHMIA
     Dosage: 400 MG/200 MG/100 MG, PO
     Route: 048

REACTIONS (3)
  - DRUG TOXICITY [None]
  - HEPATITIS [None]
  - PNEUMONITIS [None]
